FAERS Safety Report 9919719 (Version 1)
Quarter: 2014Q1

REPORT INFORMATION
  Report Type: Report from Study
  Country: IT (occurrence: IT)
  Receive Date: 20140224
  Receipt Date: 20140224
  Transmission Date: 20141002
  Serious: Yes (Other)
  Sender: FDA-Public Use
  Company Number: PHHY2014IT021229

PATIENT
  Age: 44 Year
  Sex: Female

DRUGS (1)
  1. EXTAVIA [Suspect]
     Dosage: UNK

REACTIONS (3)
  - Disorientation [Unknown]
  - Memory impairment [Unknown]
  - Injection site dysaesthesia [Unknown]
